FAERS Safety Report 26083594 (Version 2)
Quarter: 2025Q4

REPORT INFORMATION
  Report Type: Spontaneous
  Country: IN (occurrence: IN)
  Receive Date: 20251124
  Receipt Date: 20251209
  Transmission Date: 20260118
  Serious: Yes (Other)
  Sender: PFIZER
  Company Number: IN-PFIZER INC-PV202500136127

PATIENT
  Age: 50 Year
  Sex: Female

DRUGS (2)
  1. CRIZOTINIB [Suspect]
     Active Substance: CRIZOTINIB
     Indication: Lung neoplasm malignant
     Dosage: 250 MG
  2. CRIZOTINIB [Suspect]
     Active Substance: CRIZOTINIB
     Dosage: 20 MG, 2X/DAY
     Route: 048

REACTIONS (2)
  - Paralysis [Unknown]
  - Off label use [Unknown]
